FAERS Safety Report 25335920 (Version 1)
Quarter: 2025Q2

REPORT INFORMATION
  Report Type: Spontaneous
  Country: CA (occurrence: CA)
  Receive Date: 20250520
  Receipt Date: 20250520
  Transmission Date: 20250717
  Serious: Yes (Hospitalization, Other)
  Sender: BIOLOGICAL E. LIMITED
  Company Number: CA-BELUSA-2025BELSPO0029

PATIENT

DRUGS (2)
  1. ENOXAPARIN SODIUM [Suspect]
     Active Substance: ENOXAPARIN SODIUM
     Indication: Pulmonary embolism
     Dosage: 150 MG EVERY DAY BEFORE NOON (Q AM)
     Dates: start: 20240715
  2. ENOXAPARIN SODIUM [Suspect]
     Active Substance: ENOXAPARIN SODIUM
     Dosage: 120 MG EVERY AFTERNOON OR EVENING (Q PM)
     Dates: start: 20240715

REACTIONS (3)
  - Oxygen saturation abnormal [Unknown]
  - Thrombosis [Unknown]
  - Pneumonia [Unknown]
